FAERS Safety Report 12147555 (Version 1)
Quarter: 2016Q1

REPORT INFORMATION
  Report Type: Spontaneous
  Country: US (occurrence: US)
  Receive Date: 20160304
  Receipt Date: 20160304
  Transmission Date: 20160526
  Serious: Yes (Other)
  Sender: FDA-Public Use
  Company Number: PHEH2016US005053

PATIENT
  Sex: Male

DRUGS (2)
  1. ZORTRESS [Suspect]
     Active Substance: EVEROLIMUS
     Indication: PRODUCT USED FOR UNKNOWN INDICATION
     Dosage: 0.75 MG, QD (0.5 AND 0.25 TO MAKE 0.75)
     Route: 048
     Dates: start: 201306, end: 201311
  2. ZORTRESS [Suspect]
     Active Substance: EVEROLIMUS
     Dosage: 0.75 MG, QD (0.5 AND 0.25 TO MAKE 0.75)
     Route: 048
     Dates: end: 201405

REACTIONS (2)
  - Abdominal hernia [Not Recovered/Not Resolved]
  - Umbilical hernia [Unknown]
